FAERS Safety Report 7622270-9 (Version None)
Quarter: 2011Q3

REPORT INFORMATION
  Report Type: 
  Country: None (occurrence: None)
  Receive Date: 20110720
  Receipt Date: 20110606
  Transmission Date: 20111222
  Serious: Yes (Hospitalization, Other)
  Sender: FDA-Public Use
  Company Number: US-BAYER-2011-049145

PATIENT
  Age: 77 Year
  Sex: Male
  Weight: 86 kg

DRUGS (2)
  1. AMLODIPINE BESYLATE [Concomitant]
  2. ALEVE (CAPLET) [Suspect]
     Indication: PAIN IN EXTREMITY
     Dosage: BOTTLE COUNT 130CT
     Route: 048
     Dates: start: 20110604, end: 20110606

REACTIONS (5)
  - DYSPNOEA [None]
  - CHEST DISCOMFORT [None]
  - RASH PAPULAR [None]
  - HYPERSENSITIVITY [None]
  - DERMATITIS BULLOUS [None]
